FAERS Safety Report 11099180 (Version 1)
Quarter: 2015Q2

REPORT INFORMATION
  Report Type: Spontaneous
  Country: FR (occurrence: None)
  Receive Date: 20150506
  Receipt Date: 20150506
  Transmission Date: 20150821
  Serious: Yes (Hospitalization)
  Sender: FDA-Public Use
  Company Number: FK201502070

PATIENT
  Age: 65 Year
  Sex: Female

DRUGS (8)
  1. PACLITAXEL 6MG/ML CONCENTRATE FOR SOLUTION FOR INFUSION (PACLITAXEL) (PACLITAXEL) [Suspect]
     Active Substance: PACLITAXEL
     Indication: DIAPHRAGMATIC INJURY
     Dates: start: 20150303, end: 20150303
  2. ZOPHREN (ONDANSETRON) [Concomitant]
     Active Substance: ONDANSETRON
  3. CARBOPLATIN INJECTION 10MG/ML (CARBOPLATIN USP) (CARBOPLATIN USP) [Suspect]
     Active Substance: CARBOPLATIN
     Indication: BREAST CANCER METASTATIC
     Dates: start: 20150303, end: 20150303
  4. PACLITAXEL 6MG/ML CONCENTRATE FOR SOLUTION FOR INFUSION (PACLITAXEL) (PACLITAXEL) [Suspect]
     Active Substance: PACLITAXEL
     Indication: BREAST CANCER METASTATIC
     Dates: start: 20150303, end: 20150303
  5. POLARAMINE (DEXCHLOR PHENIRAMINE MALEATE) [Concomitant]
  6. METHYLPREDNISOLONE MERCK (METHYLPREDNISOLONE SODIUM SUCCINATE) [Concomitant]
  7. CARBOPLATIN INJECTION 10MG/ML (CARBOPLATIN USP) (CARBOPLATIN USP) [Suspect]
     Active Substance: CARBOPLATIN
     Indication: DIAPHRAGMATIC INJURY
     Dates: start: 20150303, end: 20150303
  8. AZANTAC (RANITIDINE HYDROCHLORIDE) [Concomitant]

REACTIONS (2)
  - Anaphylactic reaction [None]
  - Diarrhoea [None]

NARRATIVE: CASE EVENT DATE: 20150303
